FAERS Safety Report 17537646 (Version 2)
Quarter: 2020Q1

REPORT INFORMATION
  Report Type: Spontaneous
  Country: CH (occurrence: CH)
  Receive Date: 20200313
  Receipt Date: 20200326
  Transmission Date: 20200409
  Serious: Yes (Life-Threatening, Other)
  Sender: FDA-Public Use
  Company Number: NVSC2020CH070782

PATIENT
  Age: 56 Year
  Sex: Male

DRUGS (2)
  1. TAMSULOSIN SANDOZ ECO [Suspect]
     Active Substance: TAMSULOSIN HYDROCHLORIDE
     Dosage: UNK UKN
     Route: 065
     Dates: start: 20191226
  2. TAMSULOSIN SANDOZ ECO [Suspect]
     Active Substance: TAMSULOSIN HYDROCHLORIDE
     Indication: DYSURIA
     Dosage: 0.4 MG, QD (IN EVENING)
     Route: 065
     Dates: end: 201912

REACTIONS (10)
  - Facial bones fracture [Unknown]
  - Headache [Recovered/Resolved]
  - Hepatic pain [Unknown]
  - Dizziness [Unknown]
  - Orthostatic hypotension [Unknown]
  - Fall [Recovered/Resolved]
  - Dizziness [Recovered/Resolved]
  - Abdominal pain upper [Recovered/Resolved]
  - Syncope [Unknown]
  - Fall [Unknown]

NARRATIVE: CASE EVENT DATE: 20190925
